FAERS Safety Report 18749263 (Version 1)
Quarter: 2021Q1

REPORT INFORMATION
  Report Type: Spontaneous
  Country: FR (occurrence: FR)
  Receive Date: 20210116
  Receipt Date: 20210116
  Transmission Date: 20210419
  Serious: Yes (Death, Hospitalization)
  Sender: FDA-Public Use
  Company Number: FR-ACCORD-214749

PATIENT
  Age: 73 Year
  Sex: Male
  Weight: 80 kg

DRUGS (21)
  1. ALIMTA [Suspect]
     Active Substance: PEMETREXED DISODIUM
     Indication: LUNG ADENOCARCINOMA
     Route: 041
     Dates: start: 20201001, end: 20201001
  2. VITAMIN B DELAGRANGE [Concomitant]
  3. EZETIMIBE. [Concomitant]
     Active Substance: EZETIMIBE
  4. ONDANSETRON [Concomitant]
     Active Substance: ONDANSETRON
  5. PERINDOPRIL [Concomitant]
     Active Substance: PERINDOPRIL
  6. ACETYLSALICYLIC ACID [Concomitant]
     Active Substance: ASPIRIN
  7. TERBUTALINE [Concomitant]
     Active Substance: TERBUTALINE
  8. SILODOSIN. [Concomitant]
     Active Substance: SILODOSIN
  9. TRINITRINE [Concomitant]
     Active Substance: NITROGLYCERIN
  10. BISOPROLOL [Concomitant]
     Active Substance: BISOPROLOL
  11. ROSUVASTATIN. [Concomitant]
     Active Substance: ROSUVASTATIN
  12. CLOPIDOGREL [Concomitant]
     Active Substance: CLOPIDOGREL BISULFATE
  13. CARBOPLATIN ACCORD [Suspect]
     Active Substance: CARBOPLATIN
     Indication: LUNG ADENOCARCINOMA
     Route: 041
     Dates: start: 20201001, end: 20201001
  14. REPAGLINIDE. [Concomitant]
     Active Substance: REPAGLINIDE
  15. FESOTERODINE [Concomitant]
     Active Substance: FESOTERODINE
  16. EMEND [Concomitant]
     Active Substance: APREPITANT
  17. NOVORAPID [Concomitant]
     Active Substance: INSULIN ASPART
  18. FOLIC ACID. [Concomitant]
     Active Substance: FOLIC ACID
  19. NEFOPAM [Concomitant]
     Active Substance: NEFOPAM
  20. LANSOPRAZOLE. [Concomitant]
     Active Substance: LANSOPRAZOLE
  21. IPRATROPIUM [Concomitant]
     Active Substance: IPRATROPIUM

REACTIONS (2)
  - Neutropenic colitis [Fatal]
  - Pancytopenia [Fatal]

NARRATIVE: CASE EVENT DATE: 20201012
